FAERS Safety Report 6600481-9 (Version None)
Quarter: 2010Q1

REPORT INFORMATION
  Report Type: 
  Country: None (occurrence: None)
  Receive Date: 20100223
  Receipt Date: 20100223
  Transmission Date: 20100710
  Serious: Yes (Life-Threatening)
  Sender: FDA-Public Use
  Company Number: None

PATIENT
  Age: 54 Year
  Sex: Female
  Weight: 61.2356 kg

DRUGS (2)
  1. LEVAQUIN [Suspect]
     Indication: CONTUSION
     Dosage: 1 TABLET DAILY DAILY PO
     Route: 048
     Dates: start: 20100218, end: 20100220
  2. LEVAQUIN [Suspect]
     Indication: OROPHARYNGEAL PAIN
     Dosage: 1 TABLET DAILY DAILY PO
     Route: 048
     Dates: start: 20100218, end: 20100220

REACTIONS (5)
  - DYSPNOEA [None]
  - HEADACHE [None]
  - NAUSEA [None]
  - PRURITUS [None]
  - THROAT TIGHTNESS [None]
